FAERS Safety Report 9835325 (Version 1)
Quarter: 2014Q1

REPORT INFORMATION
  Report Type: Spontaneous
  Country: US (occurrence: US)
  Receive Date: 20140122
  Receipt Date: 20140122
  Transmission Date: 20141002
  Serious: No
  Sender: FDA-Public Use
  Company Number: US-BRISTOL-MYERS SQUIBB COMPANY-19930023

PATIENT
  Age: 68 Year
  Sex: Male
  Weight: 92.97 kg

DRUGS (11)
  1. ELIQUIS [Suspect]
     Indication: ATRIAL FIBRILLATION
  2. ASPIRIN [Interacting]
  3. NIACIN [Interacting]
  4. XARELTO [Concomitant]
  5. METFORMIN [Concomitant]
  6. IMDUR [Concomitant]
  7. AMARYL [Concomitant]
  8. FISH OIL [Concomitant]
  9. ATIVAN [Concomitant]
  10. COENZYME-Q10 [Concomitant]
  11. RESVERATROL [Concomitant]

REACTIONS (3)
  - Haemorrhage [Unknown]
  - Peripheral coldness [Unknown]
  - Drug interaction [Unknown]
